FAERS Safety Report 5190483-4 (Version None)
Quarter: 2006Q4

REPORT INFORMATION
  Report Type: 
  Country: None (occurrence: None)
  Receive Date: 20061222
  Receipt Date: 20061221
  Transmission Date: 20070319
  Serious: Yes (Other)
  Sender: FDA-Public Use
  Company Number: US-GLAXOSMITHKLINE-A0632367A

PATIENT
  Age: 19 Year
  Sex: Female
  Weight: 67.3 kg

DRUGS (3)
  1. PAXIL CR [Suspect]
     Route: 048
     Dates: start: 20040601, end: 20040701
  2. PROVERA [Concomitant]
  3. XANAX [Concomitant]
     Dates: start: 20040701

REACTIONS (11)
  - ANGER [None]
  - BIPOLAR DISORDER [None]
  - DEPERSONALISATION [None]
  - DISSOCIATION [None]
  - EMOTIONAL DISORDER [None]
  - HALLUCINATION, AUDITORY [None]
  - HEAD BANGING [None]
  - HYPOAESTHESIA [None]
  - INTENTIONAL SELF-INJURY [None]
  - IRRITABILITY [None]
  - SUICIDAL IDEATION [None]
